FAERS Safety Report 7889147-5 (Version None)
Quarter: 2011Q4

REPORT INFORMATION
  Report Type: 
  Country: None (occurrence: None)
  Receive Date: 20111103
  Receipt Date: 20111101
  Transmission Date: 20120403
  Serious: Yes (Other)
  Sender: FDA-Public Use
  Company Number: GB-PFIZER INC-2011247637

PATIENT
  Age: 43 Year
  Sex: Female
  Weight: 46 kg

DRUGS (6)
  1. VARENICLINE TARTRATE [Suspect]
     Indication: SMOKING CESSATION THERAPY
     Dosage: UNK
     Dates: start: 20110510, end: 20110101
  2. MORPHINE [Concomitant]
     Dosage: UNK
  3. VARENICLINE TARTRATE [Suspect]
     Dosage: 1 MG, 2X/DAY
     Dates: start: 20110101, end: 20110712
  4. SIMVASTATIN [Concomitant]
     Dosage: UNK
  5. ATENOLOL [Concomitant]
     Dosage: UNK
  6. ACETAMINOPHEN WITH PROPOXYPHENE HCL TAB [Concomitant]
     Dosage: 2 DF, 1X/DAY
     Route: 048

REACTIONS (1)
  - RECTAL HAEMORRHAGE [None]
